FAERS Safety Report 4901887-6 (Version None)
Quarter: 2006Q1

REPORT INFORMATION
  Report Type: 
  Country: None (occurrence: None)
  Receive Date: 20060206
  Receipt Date: 20060126
  Transmission Date: 20060701
  Serious: Yes (Hospitalization, Other)
  Sender: FDA-Public Use
  Company Number: US-ABBOTT-06P-163-0323360-00

PATIENT
  Sex: Female
  Weight: 90.8 kg

DRUGS (3)
  1. SYNTHROID [Suspect]
     Indication: HYPOTHYROIDISM
     Route: 048
     Dates: start: 19920101, end: 20020101
  2. SYNTHROID [Suspect]
     Route: 048
     Dates: start: 20060101
  3. METHYLPREDNISOLONE [Concomitant]
     Indication: VASCULITIS CEREBRAL
     Route: 048
     Dates: start: 20050101

REACTIONS (4)
  - CARDIAC DISORDER [None]
  - CEREBROVASCULAR ACCIDENT [None]
  - MIGRAINE [None]
  - PALPITATIONS [None]
